FAERS Safety Report 11458276 (Version 2)
Quarter: 2015Q3

REPORT INFORMATION
  Report Type: Spontaneous
  Country: US (occurrence: US)
  Receive Date: 20150904
  Receipt Date: 20150925
  Transmission Date: 20151125
  Serious: Yes (Death, Other)
  Sender: FDA-Public Use
  Company Number: US-PFIZER INC-2015291876

PATIENT
  Age: 81 Year
  Sex: Female

DRUGS (21)
  1. PROCRIT [Concomitant]
     Active Substance: ERYTHROPOIETIN
     Dosage: 40000 IU, DAILY
     Route: 058
     Dates: start: 20110923
  2. BENADRYL [Concomitant]
     Active Substance: DIPHENHYDRAMINE HYDROCHLORIDE
     Dosage: 25 MG, DAILY (PUSH OVER 2 MINUTES (2))
     Route: 042
     Dates: start: 20110624
  3. DECADRON [Concomitant]
     Active Substance: DEXAMETHASONE
     Dosage: 10 MG, DAILY (PUSH OVER 2 MINUTES)
     Route: 042
     Dates: start: 20110624
  4. AROMASIN [Suspect]
     Active Substance: EXEMESTANE
     Indication: BREAST CANCER
     Dosage: 25 MG, DAILY
     Route: 048
     Dates: start: 20150612
  5. VITAMIN B12 [Concomitant]
     Active Substance: CYANOCOBALAMIN
     Dosage: 1000 ?G, DAILY
     Route: 030
     Dates: start: 20150618
  6. PLAVIX [Concomitant]
     Active Substance: CLOPIDOGREL BISULFATE
     Dosage: 75 MG, DAILY
     Route: 048
  7. ABRAXANE [Concomitant]
     Active Substance: PACLITAXEL
     Dosage: 360 MG (200 MG/M2), DAILY
     Route: 042
     Dates: start: 20110826
  8. AVASTIN [Concomitant]
     Active Substance: BEVACIZUMAB
     Dosage: 980 MG (15.0034 MG/KG), DAILY (OVER 30 MINUTES IN NS 100 ML (2))
     Route: 042
     Dates: start: 20110624
  9. CARVEDILOL. [Concomitant]
     Active Substance: CARVEDILOL
     Dosage: 3.125 MG, 2X/DAY
     Route: 048
  10. LOSARTAN POTASSIUM. [Concomitant]
     Active Substance: LOSARTAN POTASSIUM
     Dosage: 25 MG, DAILY
     Route: 048
  11. FUROSEMIDE. [Concomitant]
     Active Substance: FUROSEMIDE
     Dosage: 0.5 DF (40 MG), AS NEEDED
     Route: 048
  12. AMOXICILLIN AND CLAVULANATE POTASSIUM [Concomitant]
     Active Substance: AMOXICILLIN\CLAVULANATE POTASSIUM
     Dosage: 1 DF, 2X/DAY
     Route: 048
     Dates: start: 20150803
  13. ALIMTA [Concomitant]
     Active Substance: PEMETREXED DISODIUM
     Dosage: 860 MG (500 MG/M2), DAILY (OVER 10 MINUTES IN NS 100 ML (1))
     Route: 042
     Dates: start: 20150618
  14. KLOR-CON M20 [Concomitant]
     Active Substance: POTASSIUM CHLORIDE
     Dosage: 20 MEQ, AS NEEDED
     Route: 048
     Dates: start: 20150209
  15. NEULASTA [Concomitant]
     Active Substance: PEGFILGRASTIM
     Dosage: 6 MG, DAILY
     Route: 058
     Dates: start: 20110919
  16. NEUPOGEN [Concomitant]
     Active Substance: FILGRASTIM
     Dosage: 480 ?G, DAILY
     Route: 051
     Dates: start: 20110729
  17. DEXAMETHASONE. [Concomitant]
     Active Substance: DEXAMETHASONE
     Dosage: 4 MG, DAILY
     Route: 048
     Dates: start: 20150618
  18. FOLIC ACID. [Concomitant]
     Active Substance: FOLIC ACID
     Dosage: 1 MG, DAILY
     Route: 048
     Dates: start: 20150611
  19. AROMASIN [Suspect]
     Active Substance: EXEMESTANE
     Indication: LUNG NEOPLASM MALIGNANT
  20. ALOXI [Concomitant]
     Active Substance: PALONOSETRON HYDROCHLORIDE
     Dosage: 0.25 MG, DAILY (PUSH OVER 30 SECONDS)
     Route: 042
     Dates: start: 20110624
  21. CARBOPLATIN. [Concomitant]
     Active Substance: CARBOPLATIN
     Dosage: 484 MG (4.6741 AUC), DAILY (OVER 30 MINUTES IN NS 250 ML (5))
     Route: 042
     Dates: start: 20110624

REACTIONS (1)
  - Death [Fatal]
